FAERS Safety Report 6153433-X (Version None)
Quarter: 2009Q2

REPORT INFORMATION
  Report Type: 
  Country: None (occurrence: None)
  Receive Date: 20090409
  Receipt Date: 20090409
  Transmission Date: 20091009
  Serious: Yes (Life-Threatening, Hospitalization)
  Sender: FDA-Public Use
  Company Number: None

PATIENT
  Sex: Male
  Weight: 134.2647 kg

DRUGS (2)
  1. GEODON [Suspect]
     Dosage: 300MG 2 X DAY ORAL
     Route: 048
  2. RISPERDAL [Suspect]
     Dosage: RISPERDAL @ CSU

REACTIONS (8)
  - ANXIETY [None]
  - CATATONIA [None]
  - DEHYDRATION [None]
  - DYSPHAGIA [None]
  - MALNUTRITION [None]
  - NEUROLEPTIC MALIGNANT SYNDROME [None]
  - TARDIVE DYSKINESIA [None]
  - WEIGHT DECREASED [None]
